FAERS Safety Report 22761673 (Version 4)
Quarter: 2023Q4

REPORT INFORMATION
  Report Type: Spontaneous
  Country: US (occurrence: US)
  Receive Date: 20230728
  Receipt Date: 20231002
  Transmission Date: 20240110
  Serious: No
  Sender: FDA-Public Use
  Company Number: US-PFIZER INC-202300256198

PATIENT
  Age: 58 Year
  Sex: Female
  Weight: 117.91 kg

DRUGS (3)
  1. PAXLOVID [Suspect]
     Active Substance: NIRMATRELVIR\RITONAVIR
     Indication: COVID-19 treatment
     Dosage: [NIRMATRELVIR UNKOWN]/[RITONAVIR 100 MG], 2X/DAY (FULL 5 DAYS)
     Route: 048
     Dates: start: 20230710, end: 20230715
  2. LOSARTAN CT [Concomitant]
     Indication: Hypertension
     Dosage: 25 MG
     Route: 048
     Dates: start: 2000
  3. AMLODIPINE BESYLATE [Concomitant]
     Active Substance: AMLODIPINE BESYLATE
     Indication: Hypertension
     Dosage: 10 MG
     Route: 048
     Dates: start: 2010

REACTIONS (2)
  - COVID-19 [Recovered/Resolved]
  - Disease recurrence [Recovered/Resolved]

NARRATIVE: CASE EVENT DATE: 20230720
